FAERS Safety Report 15283046 (Version 1)
Quarter: 2018Q3

REPORT INFORMATION
  Report Type: Spontaneous
  Country: FR (occurrence: FR)
  Receive Date: 20180816
  Receipt Date: 20180816
  Transmission Date: 20181010
  Serious: No
  Sender: FDA-Public Use
  Company Number: FR-LUPIN PHARMACEUTICALS INC.-2017-06353

PATIENT
  Age: 67 Year
  Sex: Male

DRUGS (6)
  1. MEROPENEM. [Suspect]
     Active Substance: MEROPENEM
     Indication: OSTEITIS
     Dosage: 1 G, QID
     Route: 042
  2. MEROPENEM. [Suspect]
     Active Substance: MEROPENEM
     Dosage: 1 G, QID
     Route: 042
  3. RIFAMPICIN [Concomitant]
     Active Substance: RIFAMPIN
     Indication: OSTEITIS
     Dosage: 600 MG, BID
     Route: 048
  4. LEVOFLOXACIN. [Suspect]
     Active Substance: LEVOFLOXACIN
     Dosage: 500 MG, BID
     Route: 048
  5. LEVOFLOXACIN. [Suspect]
     Active Substance: LEVOFLOXACIN
     Indication: OSTEITIS
     Dosage: 500 MG, BID
     Route: 042
  6. AMIKACIN. [Concomitant]
     Active Substance: AMIKACIN
     Indication: OSTEITIS
     Dosage: 500 MG, UNK
     Route: 042

REACTIONS (1)
  - Skin hyperpigmentation [Recovering/Resolving]
